FAERS Safety Report 13543929 (Version 1)
Quarter: 2017Q2

REPORT INFORMATION
  Report Type: Spontaneous
  Country: US (occurrence: US)
  Receive Date: 20170515
  Receipt Date: 20170515
  Transmission Date: 20170830
  Serious: No
  Sender: FDA-Public Use
  Company Number: US-TEVA-652249USA

PATIENT
  Sex: Female
  Weight: 56.75 kg

DRUGS (2)
  1. PREDNISOLONE. [Concomitant]
     Active Substance: PREDNISOLONE
  2. CEFALEXIN [Suspect]
     Active Substance: CEPHALEXIN

REACTIONS (5)
  - Feeling hot [Unknown]
  - Dyspnoea [Unknown]
  - Insomnia [Unknown]
  - Chest discomfort [Unknown]
  - Dyspepsia [Unknown]
